FAERS Safety Report 14802768 (Version 1)
Quarter: 2018Q2

REPORT INFORMATION
  Report Type: Spontaneous
  Country: FR (occurrence: FR)
  Receive Date: 20180424
  Receipt Date: 20180424
  Transmission Date: 20180711
  Serious: Yes (Life-Threatening, Hospitalization)
  Sender: FDA-Public Use
  Company Number: FR-PFIZER INC-2018162794

PATIENT
  Age: 64 Year
  Sex: Female
  Weight: 70 kg

DRUGS (1)
  1. FOSPHENYTOIN SODIUM. [Suspect]
     Active Substance: FOSPHENYTOIN SODIUM
     Indication: STATUS EPILEPTICUS
     Dosage: 20000 UG/KG, SINGLE
     Route: 040
     Dates: start: 20180102, end: 20180102

REACTIONS (3)
  - Nodal rhythm [Recovered/Resolved]
  - Sinus bradycardia [Recovered/Resolved]
  - Hypotension [Recovered/Resolved]

NARRATIVE: CASE EVENT DATE: 20180102
